FAERS Safety Report 7753515-2 (Version None)
Quarter: 2011Q3

REPORT INFORMATION
  Report Type: 
  Country: None (occurrence: None)
  Receive Date: 20110913
  Receipt Date: 20110909
  Transmission Date: 20111222
  Serious: Yes (Death, Life-Threatening)
  Sender: FDA-Public Use
  Company Number: 2011SP042521

PATIENT
  Age: 54 Year
  Sex: Male

DRUGS (4)
  1. MIRTAZAPINE [Suspect]
     Indication: PRODUCT USED FOR UNKNOWN INDICATION
     Dosage: 15 MG;PO 30 MG;PO
     Route: 048
     Dates: start: 20080101, end: 20100209
  2. MIRTAZAPINE [Suspect]
     Indication: PRODUCT USED FOR UNKNOWN INDICATION
     Dosage: 15 MG;PO 30 MG;PO
     Route: 048
     Dates: start: 20100210, end: 20100217
  3. PREDNISONE [Concomitant]
  4. PREDNISOLONE [Concomitant]

REACTIONS (2)
  - ARRHYTHMIA [None]
  - SUDDEN DEATH [None]
